FAERS Safety Report 24400864 (Version 1)
Quarter: 2024Q4

REPORT INFORMATION
  Report Type: Spontaneous
  Country: CO (occurrence: CO)
  Receive Date: 20241006
  Receipt Date: 20241006
  Transmission Date: 20250114
  Serious: Yes (Hospitalization)
  Sender: BOEHRINGER INGELHEIM
  Company Number: CO-BoehringerIngelheim-2024-BI-055210

PATIENT
  Age: 70 Year
  Sex: Male

DRUGS (1)
  1. PRADAXA [Suspect]
     Active Substance: DABIGATRAN ETEXILATE MESYLATE
     Indication: Atrial fibrillation

REACTIONS (4)
  - Headache [Unknown]
  - Pyrexia [Unknown]
  - Musculoskeletal stiffness [Unknown]
  - Intracranial pressure increased [Unknown]

NARRATIVE: CASE EVENT DATE: 20241001
